FAERS Safety Report 20143500 (Version 1)
Quarter: 2021Q4

REPORT INFORMATION
  Report Type: Spontaneous
  Country: US (occurrence: US)
  Receive Date: 20211203
  Receipt Date: 20211203
  Transmission Date: 20220303
  Serious: No
  Sender: FDA-Public Use
  Company Number: US-drreddys-SPO/USA/21/0144364

PATIENT
  Age: 17 Year
  Sex: Male

DRUGS (2)
  1. ACCUTANE [Suspect]
     Active Substance: ISOTRETINOIN
     Indication: Product used for unknown indication
     Dosage: RMA ISSUE DATE:26 JULY 2021 12:00:00 AM
  2. ACCUTANE [Suspect]
     Active Substance: ISOTRETINOIN
     Dosage: RMA ISSUE DATE:1 SEPTEMBER 2021 12:00:00 AM,9 SEPTEMBER 2021 12:00:00 AM,20 OCTOBER 2021 12:00:00 AM

REACTIONS (1)
  - Treatment noncompliance [Unknown]
